FAERS Safety Report 8127356-0 (Version None)
Quarter: 2012Q1

REPORT INFORMATION
  Report Type: 
  Country: None (occurrence: None)
  Receive Date: 20120210
  Receipt Date: 20120131
  Transmission Date: 20120608
  Serious: Yes (Life-Threatening, Hospitalization)
  Sender: FDA-Public Use
  Company Number: NO-JNJFOC-20120200318

PATIENT
  Sex: Female

DRUGS (2)
  1. REMICADE [Suspect]
     Indication: CROHN'S DISEASE
     Route: 042
     Dates: start: 20080101
  2. VENOFER [Concomitant]
     Indication: IRON DEFICIENCY ANAEMIA
     Route: 042

REACTIONS (7)
  - ABDOMINAL PAIN [None]
  - RESPIRATORY DISTRESS [None]
  - PALLOR [None]
  - ANAPHYLACTIC REACTION [None]
  - INFUSION RELATED REACTION [None]
  - VOMITING [None]
  - NAUSEA [None]
